FAERS Safety Report 20192733 (Version 1)
Quarter: 2021Q4

REPORT INFORMATION
  Report Type: Spontaneous
  Country: FR (occurrence: FR)
  Receive Date: 20211216
  Receipt Date: 20211216
  Transmission Date: 20220303
  Serious: Yes (Hospitalization, Other)
  Sender: FDA-Public Use
  Company Number: FR-VALIDUS PHARMACEUTICALS LLC-FR-VDP-2021-014714

PATIENT

DRUGS (4)
  1. FUROSEMIDE [Suspect]
     Active Substance: FUROSEMIDE
     Indication: Oedema peripheral
     Dosage: UNK
     Route: 048
     Dates: start: 20211011, end: 20211024
  2. ATORVASTATIN [Suspect]
     Active Substance: ATORVASTATIN
     Indication: Dyslipidaemia
     Dosage: 80 MG, QD
     Route: 048
     Dates: start: 2018, end: 20211018
  3. ELIQUIS [Suspect]
     Active Substance: APIXABAN
     Indication: Cardiac valve prosthesis user
     Dosage: 5 MG, BID
     Route: 048
     Dates: start: 202106
  4. CLOXACILLIN [Suspect]
     Active Substance: CLOXACILLIN
     Indication: Prosthetic valve endocarditis
     Dosage: 12 G, QD (Q24H)
     Route: 042
     Dates: start: 20210919, end: 20211014

REACTIONS (2)
  - Rhabdomyolysis [Recovered/Resolved]
  - Cell death [Recovered/Resolved]
